FAERS Safety Report 8207062-4 (Version None)
Quarter: 2012Q1

REPORT INFORMATION
  Report Type: 
  Country: None (occurrence: None)
  Receive Date: 20120314
  Receipt Date: 20120305
  Transmission Date: 20120608
  Serious: Yes (Hospitalization)
  Sender: FDA-Public Use
  Company Number: US-BAYER-2011-079896

PATIENT
  Age: 49 Year
  Sex: Female
  Weight: 77 kg

DRUGS (2)
  1. YASMIN [Suspect]
     Dosage: UNK
     Dates: start: 20060101, end: 20110101
  2. YAZ [Suspect]
     Dosage: UNK
     Dates: start: 20060101, end: 20110101

REACTIONS (12)
  - ABDOMINAL MASS [None]
  - EMOTIONAL DISTRESS [None]
  - STRESS [None]
  - PAIN [None]
  - HYPERTENSION [None]
  - MENTAL DISORDER [None]
  - BILIARY DYSKINESIA [None]
  - ANXIETY [None]
  - GALLBLADDER DISORDER [None]
  - BENIGN MESENTERIC NEOPLASM [None]
  - DIABETES MELLITUS [None]
  - INJURY [None]
